FAERS Safety Report 24177753 (Version 1)
Quarter: 2024Q3

REPORT INFORMATION
  Report Type: Spontaneous
  Country: US (occurrence: US)
  Receive Date: 20240806
  Receipt Date: 20240806
  Transmission Date: 20241017
  Serious: No
  Sender: BRISTOL MYERS SQUIBB
  Company Number: US-BRISTOL-MYERS SQUIBB COMPANY-2024-123322

PATIENT
  Age: 72 Year
  Sex: Male

DRUGS (1)
  1. ONUREG [Suspect]
     Active Substance: AZACITIDINE
     Indication: Product used for unknown indication
     Dosage: FREQ : ONE TABLET DAILY FOR 7 DAYS OF A 28 DAY CYCLE
     Route: 048

REACTIONS (2)
  - Off label use [Unknown]
  - Product administration interrupted [Unknown]
